FAERS Safety Report 8301457-6 (Version None)
Quarter: 2012Q2

REPORT INFORMATION
  Report Type: 
  Country: None (occurrence: None)
  Receive Date: 20120420
  Receipt Date: 20120413
  Transmission Date: 20120825
  Serious: Yes (Other)
  Sender: FDA-Public Use
  Company Number: CA-JNJFOC-20120111399

PATIENT
  Sex: Female

DRUGS (1)
  1. STELARA [Suspect]
     Indication: PSORIASIS
     Route: 058
     Dates: start: 20111010

REACTIONS (8)
  - HEADACHE [None]
  - MENISCUS LESION [None]
  - DRUG INEFFECTIVE [None]
  - SKIN FISSURES [None]
  - SKIN HAEMORRHAGE [None]
  - HYPOAESTHESIA ORAL [None]
  - ARTHRALGIA [None]
  - DRY SKIN [None]
